FAERS Safety Report 7900039 (Version 9)
Quarter: 2012Q4

REPORT INFORMATION
  Report Type: 
  Country: CA (occurrence: CA)
  Receive Date: 20110414
  Receipt Date: 20121226
  Transmission Date: 20130627
  Serious: Yes (Hospitalization, Other)
  Sender: FDA-Public Use
  Company Number: CA-ROCHE-GNE316417

PATIENT
  Age: 34 None
  Sex: Female

DRUGS (8)
  1. XOLAIR [Suspect]
     Indication: ASTHMA
     Route: 058
     Dates: start: 20110217
  2. PNEUMOCOCCAL VACCINE [Concomitant]
  3. FLU SHOT [Concomitant]
  4. ADVAIR [Concomitant]
  5. ALVESCO [Concomitant]
  6. SALBUTAMOL [Concomitant]
  7. MONTELUKAST SODIUM [Concomitant]
  8. PREDNISONE [Concomitant]

REACTIONS (15)
  - Pneumonia [Unknown]
  - Bronchiectasis [Unknown]
  - Dyspnoea exertional [Unknown]
  - Cough [Unknown]
  - Arthralgia [Unknown]
  - Heart rate increased [Unknown]
  - Upper respiratory tract infection [Unknown]
  - Nasopharyngitis [Unknown]
  - Nasal congestion [Unknown]
  - Breath sounds abnormal [Unknown]
  - Adrenal insufficiency [Unknown]
  - Fatigue [Unknown]
  - Blood cortisol decreased [Unknown]
  - Pain in extremity [Unknown]
  - Sluggishness [Unknown]
